FAERS Safety Report 5913234-1 (Version None)
Quarter: 2008Q4

REPORT INFORMATION
  Report Type: 
  Country: None (occurrence: None)
  Receive Date: 20081009
  Receipt Date: 20081006
  Transmission Date: 20090506
  Serious: Yes (Hospitalization)
  Sender: FDA-Public Use
  Company Number: FR-BRISTOL-MYERS SQUIBB COMPANY-14361463

PATIENT
  Age: 56 Year
  Sex: Male

DRUGS (2)
  1. TAXOL [Suspect]
     Indication: LUNG CANCER METASTATIC
     Route: 042
     Dates: start: 20080919, end: 20080919
  2. CARBOPLATIN [Suspect]
     Indication: LUNG CANCER METASTATIC
     Route: 042
     Dates: start: 20080919, end: 20080919

REACTIONS (4)
  - HYPOAESTHESIA ORAL [None]
  - SALIVARY HYPERSECRETION [None]
  - SPEECH DISORDER [None]
  - TREMOR [None]
